FAERS Safety Report 21289438 (Version 2)
Quarter: 2022Q3

REPORT INFORMATION
  Report Type: Spontaneous
  Country: US (occurrence: US)
  Receive Date: 20220902
  Receipt Date: 20220920
  Transmission Date: 20221026
  Serious: No
  Sender: FDA-Public Use
  Company Number: US-BRISTOL-MYERS SQUIBB COMPANY-2022-099304

PATIENT
  Age: 84 Year
  Sex: Female

DRUGS (1)
  1. REVLIMID [Suspect]
     Active Substance: LENALIDOMIDE
     Indication: Plasma cell myeloma
     Dosage: FREQUENCY : TAKE 1 CAPSULE BY MOUTH DAILY ON DAYS 1-14 OF EACH 21-DAY CYCLE. TAKE WHOLE WITH WATER A
     Route: 048
     Dates: start: 20220830

REACTIONS (3)
  - Arthritis [Unknown]
  - Inflammation [Unknown]
  - Intentional product use issue [Unknown]
